FAERS Safety Report 8184718-3 (Version None)
Quarter: 2012Q1

REPORT INFORMATION
  Report Type: 
  Country: None (occurrence: None)
  Receive Date: 20120305
  Receipt Date: 20120305
  Transmission Date: 20120608
  Serious: No
  Sender: FDA-Public Use
  Company Number: None

PATIENT
  Sex: Female

DRUGS (1)
  1. XANAX [Suspect]
     Indication: ANXIETY
     Dosage: 1.0 MG
     Route: 048
     Dates: start: 20110904, end: 20111004

REACTIONS (2)
  - NIGHTMARE [None]
  - ABDOMINAL DISCOMFORT [None]
